FAERS Safety Report 9748440 (Version 3)
Quarter: 2014Q1

REPORT INFORMATION
  Report Type: Report from Study
  Country: US (occurrence: US)
  Receive Date: 20131212
  Receipt Date: 20140205
  Transmission Date: 20141002
  Serious: Yes (Other)
  Sender: FDA-Public Use
  Company Number: US-JNJFOC-20131202789

PATIENT
  Age: 60 Year
  Sex: Female
  Weight: 81.65 kg

DRUGS (12)
  1. XARELTO [Suspect]
     Indication: CEREBROVASCULAR ACCIDENT PROPHYLAXIS
     Route: 048
     Dates: start: 201212
  2. XARELTO [Suspect]
     Indication: ATRIAL FIBRILLATION
     Route: 048
     Dates: start: 201212
  3. METOPROLOL [Suspect]
     Indication: HEART RATE DECREASED
     Route: 048
  4. METOPROLOL [Suspect]
     Indication: HEART RATE DECREASED
     Route: 048
     Dates: end: 201308
  5. METOPROLOL [Suspect]
     Indication: BLOOD PRESSURE
     Route: 048
     Dates: end: 201308
  6. METOPROLOL [Suspect]
     Indication: BLOOD PRESSURE
     Route: 048
  7. LOSARTAN AND HYDROCHLOROTHIAZIDE [Concomitant]
     Indication: BLOOD PRESSURE
     Dosage: LOSARTAN-100MH, HCTZ-12.5MG
     Route: 048
     Dates: start: 2011
  8. OMEPRAZOLE [Concomitant]
     Indication: GASTROOESOPHAGEAL REFLUX DISEASE
     Route: 048
     Dates: start: 2009
  9. PHOSPHA 250 [Concomitant]
     Indication: BLOOD PHOSPHORUS DECREASED
     Route: 065
  10. FISH OIL [Concomitant]
     Route: 065
  11. VITAMIN D3 [Concomitant]
     Route: 065
  12. BIOTIN [Concomitant]
     Route: 065

REACTIONS (6)
  - Presyncope [Recovered/Resolved]
  - Tachycardia [Unknown]
  - Heart rate decreased [Recovered/Resolved]
  - Lethargy [Recovered/Resolved]
  - Tinnitus [Not Recovered/Not Resolved]
  - Inappropriate schedule of drug administration [Not Recovered/Not Resolved]
